FAERS Safety Report 7982971-X (Version None)
Quarter: 2011Q4

REPORT INFORMATION
  Report Type: 
  Country: None (occurrence: None)
  Receive Date: 20111215
  Receipt Date: 20111207
  Transmission Date: 20120403
  Serious: No
  Sender: FDA-Public Use
  Company Number: US-B.I. PHARMACEUTICALS,INC./RIDGEFIELD-2011-BP-27613BP

PATIENT
  Sex: Male

DRUGS (8)
  1. PRADAXA [Suspect]
     Indication: ATRIAL FIBRILLATION
     Dosage: 300 MG
     Route: 048
     Dates: start: 20110701
  2. HYDRALAZINE HCL [Concomitant]
     Indication: HYPERTENSION
     Dosage: 75 MG
  3. CLONIDINE [Concomitant]
     Indication: PAIN IN EXTREMITY
     Route: 042
  4. MORPHINE [Concomitant]
     Indication: PAIN
     Route: 042
  5. HYDROCHLOROTHIAZIDE [Concomitant]
     Dosage: 12.5 MG
     Route: 048
  6. LISINOPRIL [Concomitant]
     Indication: HYPERTENSION
     Dosage: 20 MG
     Route: 048
  7. FENTANYL [Concomitant]
     Indication: PAIN
     Route: 042
  8. AMITIZA [Concomitant]
     Indication: CONSTIPATION
     Route: 048

REACTIONS (1)
  - HEPATIC MASS [None]
